FAERS Safety Report 11559493 (Version 1)
Quarter: 2015Q3

REPORT INFORMATION
  Report Type: Spontaneous
  Country: US (occurrence: None)
  Receive Date: 20150925
  Receipt Date: 20150925
  Transmission Date: 20151125
  Serious: Yes (Other)
  Sender: FDA-Public Use
  Company Number: None

PATIENT
  Age: 62 Year
  Sex: Male
  Weight: 90.72 kg

DRUGS (2)
  1. SILDENAFIL 20MG [Suspect]
     Active Substance: SILDENAFIL
     Indication: PULMONARY HYPERTENSION
     Dosage: 3 PILLS
     Route: 048
     Dates: start: 20150907
  2. SILDENAFIL 20MG [Suspect]
     Active Substance: SILDENAFIL
     Indication: HYPERTENSION
     Dosage: 3 PILLS
     Route: 048
     Dates: start: 20150907

REACTIONS (4)
  - Cerebrovascular accident [None]
  - Thrombosis [None]
  - Neovascular age-related macular degeneration [None]
  - Blindness unilateral [None]

NARRATIVE: CASE EVENT DATE: 20150506
